FAERS Safety Report 10619294 (Version 1)
Quarter: 2014Q4

REPORT INFORMATION
  Report Type: Spontaneous
  Country: US (occurrence: None)
  Receive Date: 20141126
  Receipt Date: 20141126
  Transmission Date: 20150529
  Serious: Yes (Disabling)
  Sender: FDA-Public Use
  Company Number: 2014-US-015261

PATIENT
  Age: 52 Year
  Sex: Female
  Weight: 120.2 kg

DRUGS (2)
  1. XYREM [Suspect]
     Active Substance: SODIUM OXYBATE
     Indication: NARCOLEPSY
     Route: 048
     Dates: start: 201104, end: 2011
  2. XYREM [Suspect]
     Active Substance: SODIUM OXYBATE
     Indication: SOMNOLENCE
     Route: 048
     Dates: start: 201104, end: 2011

REACTIONS (7)
  - Back pain [None]
  - Depression [None]
  - Anxiety [None]
  - Fibromyalgia [None]
  - Contusion [None]
  - Loss of control of legs [None]
  - Fall [None]

NARRATIVE: CASE EVENT DATE: 201410
